FAERS Safety Report 14648096 (Version 1)
Quarter: 2018Q1

REPORT INFORMATION
  Report Type: Spontaneous
  Country: US (occurrence: US)
  Receive Date: 20180316
  Receipt Date: 20180316
  Transmission Date: 20180509
  Serious: Yes (Other)
  Sender: FDA-Public Use
  Company Number: US-JNJFOC-20180319387

PATIENT
  Sex: Male
  Weight: 51 kg

DRUGS (16)
  1. IMBRUVICA [Suspect]
     Active Substance: IBRUTINIB
     Indication: PRODUCT USED FOR UNKNOWN INDICATION
     Route: 048
     Dates: start: 20161229
  2. REMERON [Concomitant]
     Active Substance: MIRTAZAPINE
  3. MIDODRINE [Concomitant]
     Active Substance: MIDODRINE
  4. VITAMIN D3 [Concomitant]
     Active Substance: CHOLECALCIFEROL
  5. LIPITOR [Concomitant]
     Active Substance: ATORVASTATIN CALCIUM
  6. SINEMET [Concomitant]
     Active Substance: CARBIDOPA\LEVODOPA
  7. SYNTHROID [Concomitant]
     Active Substance: LEVOTHYROXINE SODIUM
  8. MAGNESIUM DIOXIDE [Concomitant]
  9. PROTONIX [Concomitant]
     Active Substance: PANTOPRAZOLE SODIUM
  10. CALCIUM CHLORIDE. [Concomitant]
     Active Substance: CALCIUM CHLORIDE
  11. MYRBETRIQ [Concomitant]
     Active Substance: MIRABEGRON
  12. ZOLOFT [Concomitant]
     Active Substance: SERTRALINE HYDROCHLORIDE
  13. KLONOPIN [Concomitant]
     Active Substance: CLONAZEPAM
  14. COLACE [Concomitant]
     Active Substance: DOCUSATE SODIUM
  15. FLORINEF ACETATE [Concomitant]
     Active Substance: FLUDROCORTISONE ACETATE
  16. VALTREX [Concomitant]
     Active Substance: VALACYCLOVIR HYDROCHLORIDE

REACTIONS (1)
  - Neurological decompensation [Unknown]
